FAERS Safety Report 4916324-5 (Version None)
Quarter: 2006Q1

REPORT INFORMATION
  Report Type: 
  Country: None (occurrence: None)
  Receive Date: 20060217
  Receipt Date: 20060207
  Transmission Date: 20060701
  Serious: Yes (Hospitalization)
  Sender: FDA-Public Use
  Company Number: US-MERCK-0602USA02254

PATIENT
  Sex: Female

DRUGS (13)
  1. VIOXX [Suspect]
     Route: 048
  2. ZESTRIL [Concomitant]
     Route: 065
  3. DILACOR XR [Concomitant]
     Route: 065
  4. LASIX [Concomitant]
     Route: 065
  5. POTASSIUM (UNSPECIFIED) [Concomitant]
     Route: 065
  6. ASPIRIN [Concomitant]
     Route: 065
  7. LANOXIN [Concomitant]
     Route: 065
  8. IMDUR [Concomitant]
     Route: 065
  9. METRONIDAZOLE [Concomitant]
     Route: 065
  10. LEVAQUIN [Concomitant]
     Route: 065
  11. ATIVAN [Concomitant]
     Route: 065
  12. PEPCID [Concomitant]
     Route: 065
  13. ALBUTEROL [Concomitant]
     Route: 065

REACTIONS (14)
  - ACUTE PULMONARY OEDEMA [None]
  - ANAEMIA [None]
  - AORTIC VALVE DISEASE [None]
  - ATRIAL FIBRILLATION [None]
  - CARDIAC FAILURE CONGESTIVE [None]
  - DIARRHOEA [None]
  - GASTROINTESTINAL HAEMORRHAGE [None]
  - IMPLANTABLE DEFIBRILLATOR MALFUNCTION [None]
  - ISCHAEMIC CARDIOMYOPATHY [None]
  - MITRAL VALVE DISEASE [None]
  - MYOCARDIAL INFARCTION [None]
  - PNEUMONIA [None]
  - RECTAL POLYP [None]
  - RESPIRATORY FAILURE [None]
